FAERS Safety Report 6895394-1 (Version None)
Quarter: 2010Q3

REPORT INFORMATION
  Report Type: 
  Country: None (occurrence: None)
  Receive Date: 20100802
  Receipt Date: 20100727
  Transmission Date: 20110219
  Serious: Yes (Death, Hospitalization, Other)
  Sender: FDA-Public Use
  Company Number: US-PFIZER INC-2005135105

PATIENT
  Sex: Male
  Weight: 75 kg

DRUGS (3)
  1. GABAPENTIN [Suspect]
     Indication: TRIGEMINAL NEURALGIA
     Dosage: 100 MG, 3X/DAY
     Route: 065
     Dates: start: 20010508, end: 20010501
  2. TEGRETOL [Suspect]
     Indication: ILL-DEFINED DISORDER
     Dosage: UNK
     Route: 065
  3. VASOTEC [Suspect]
     Indication: ILL-DEFINED DISORDER
     Dosage: 10 MG, 1X/DAY
     Route: 065
     Dates: start: 19990202

REACTIONS (5)
  - COMPLETED SUICIDE [None]
  - DEPRESSION [None]
  - DRUG INEFFECTIVE [None]
  - GUN SHOT WOUND [None]
  - HYPOTENSION [None]
